FAERS Safety Report 7725536-7 (Version None)
Quarter: 2011Q3

REPORT INFORMATION
  Report Type: 
  Country: None (occurrence: None)
  Receive Date: 20110902
  Receipt Date: 20110829
  Transmission Date: 20111222
  Serious: Yes (Death)
  Sender: FDA-Public Use
  Company Number: US-GENZYME-RENA-1001301

PATIENT
  Age: 76 Year
  Sex: Female

DRUGS (1)
  1. RENVELA [Suspect]
     Indication: HYPERPHOSPHATAEMIA
     Dosage: 1.6 G, TID
     Route: 048
     Dates: start: 20091013

REACTIONS (1)
  - DEATH [None]
